FAERS Safety Report 8036298-0 (Version None)
Quarter: 2011Q4

REPORT INFORMATION
  Report Type: 
  Country: None (occurrence: None)
  Receive Date: 20111202
  Receipt Date: 20111006
  Transmission Date: 20120403
  Serious: No
  Sender: FDA-Public Use
  Company Number: PHEH2011US06228

PATIENT
  Sex: Female

DRUGS (1)
  1. FANAPT [Suspect]

REACTIONS (2)
  - NASOPHARYNGITIS [None]
  - COUGH [None]
